FAERS Safety Report 4836326-7 (Version None)
Quarter: 2005Q4

REPORT INFORMATION
  Report Type: 
  Country: None (occurrence: None)
  Receive Date: 20051123
  Receipt Date: 20050629
  Transmission Date: 20060501
  Serious: Yes (Hospitalization, Disabling)
  Sender: FDA-Public Use
  Company Number: US-ROCHE-409393

PATIENT
  Age: 14 Year
  Sex: Male
  Weight: 65.8 kg

DRUGS (23)
  1. ACCUTANE [Suspect]
     Indication: ACNE
     Route: 048
     Dates: start: 19970829
  2. ACCUTANE [Suspect]
     Dosage: ALTERNATING DOSE.
     Route: 048
     Dates: start: 19970925
  3. ACCUTANE [Suspect]
     Route: 048
     Dates: start: 19971023
  4. ACCUTANE [Suspect]
     Route: 048
     Dates: start: 19980831
  5. ACCUTANE [Suspect]
     Route: 048
     Dates: start: 20010928, end: 20011130
  6. ACCUTANE [Suspect]
     Route: 048
     Dates: start: 20011130
  7. ACCUTANE [Suspect]
     Dosage: DOSAGE REGIMEN: ONE PER DAY
     Route: 048
     Dates: start: 20020108
  8. ACCUTANE [Suspect]
     Route: 048
     Dates: start: 20020215, end: 20021015
  9. ACCUTANE [Suspect]
     Route: 048
     Dates: start: 20021206, end: 20030915
  10. ACCUTANE [Suspect]
     Route: 048
     Dates: start: 20031015, end: 20031015
  11. ASCORBIC ACID [Concomitant]
  12. ZINC [Concomitant]
  13. DRYSOL [Concomitant]
     Indication: HYPERHIDROSIS
  14. VITAMIN E [Concomitant]
  15. CALCIUM GLUCONATE [Concomitant]
  16. PENLAC [Concomitant]
  17. AVODART [Concomitant]
  18. BACTROBAN [Concomitant]
  19. EUCERIN [Concomitant]
  20. CETAPHIL [Concomitant]
  21. LOPROX [Concomitant]
  22. CENTRUM [Concomitant]
  23. FISH OIL [Concomitant]

REACTIONS (33)
  - ALOPECIA [None]
  - ANAEMIA [None]
  - ANAL FISTULA [None]
  - ANHEDONIA [None]
  - ANKYLOGLOSSIA ACQUIRED [None]
  - ANXIETY [None]
  - ARTHRITIS [None]
  - ARTHROPOD BITE [None]
  - BARRETT'S OESOPHAGUS [None]
  - BRONCHITIS [None]
  - CROHN'S DISEASE [None]
  - DRY SKIN [None]
  - ERYTHEMA NODOSUM [None]
  - FATIGUE [None]
  - GASTROINTESTINAL DISORDER [None]
  - HEPATIC ENZYME INCREASED [None]
  - HYPERHIDROSIS [None]
  - HYPOTRICHOSIS [None]
  - ILEITIS [None]
  - INFLAMMATORY BOWEL DISEASE [None]
  - INGROWING NAIL [None]
  - INTESTINAL HAEMORRHAGE [None]
  - LENTIGO [None]
  - LEUKOCYTOCLASTIC VASCULITIS [None]
  - LIMB DISCOMFORT [None]
  - MELANOCYTIC NAEVUS [None]
  - MULTI-ORGAN DISORDER [None]
  - NASOPHARYNGITIS [None]
  - PERIRECTAL ABSCESS [None]
  - PSEUDOFOLLICULITIS BARBAE [None]
  - RECTAL HAEMORRHAGE [None]
  - SKIN PAPILLOMA [None]
  - WEIGHT DECREASED [None]
